FAERS Safety Report 7742996-6 (Version None)
Quarter: 2011Q3

REPORT INFORMATION
  Report Type: 
  Country: None (occurrence: None)
  Receive Date: 20110906
  Receipt Date: 20110822
  Transmission Date: 20111222
  Serious: Yes (Other)
  Sender: FDA-Public Use
  Company Number: B0743203A

PATIENT
  Sex: Female

DRUGS (2)
  1. SOTALOL HCL [Suspect]
     Indication: TACHYCARDIA FOETAL
     Dosage: TRANSPLACENTARY
  2. DIGOXIN [Suspect]
     Indication: TACHYCARDIA FOETAL
     Dosage: TRANSPLACENTARY
     Route: 064

REACTIONS (14)
  - PREMATURE BABY [None]
  - APGAR SCORE LOW [None]
  - DRUG RESISTANCE [None]
  - RETINOPATHY OF PREMATURITY [None]
  - MATERNAL DRUGS AFFECTING FOETUS [None]
  - CARDIOMYOPATHY [None]
  - CAESAREAN SECTION [None]
  - BLOOD PH DECREASED [None]
  - INTRAVENTRICULAR HAEMORRHAGE [None]
  - FOETAL CARDIAC DISORDER [None]
  - NEONATAL TACHYCARDIA [None]
  - LEFT VENTRICULAR DYSFUNCTION [None]
  - CARDIOGENIC SHOCK [None]
  - ASCITES [None]
